FAERS Safety Report 8361404-8 (Version None)
Quarter: 2012Q2

REPORT INFORMATION
  Report Type: 
  Country: None (occurrence: None)
  Receive Date: 20120515
  Receipt Date: 20120215
  Transmission Date: 20120825
  Serious: No
  Sender: FDA-Public Use
  Company Number: US-ASTRAZENECA-2012SE10656

PATIENT
  Age: 36 Year
  Sex: Female
  Weight: 86.2 kg

DRUGS (7)
  1. PRILOSEC [Suspect]
     Route: 048
  2. PRILOSEC OTC [Suspect]
     Route: 048
  3. XYZAL [Concomitant]
     Indication: MULTIPLE ALLERGIES
  4. PROTONIX [Concomitant]
  5. ZANTAC [Concomitant]
  6. NASONEX [Concomitant]
     Indication: RHINITIS ALLERGIC
  7. NEXIUM [Suspect]
     Indication: GASTROOESOPHAGEAL REFLUX DISEASE
     Route: 048

REACTIONS (7)
  - ORAL HERPES [None]
  - FEELING HOT [None]
  - DRUG DOSE OMISSION [None]
  - DYSPEPSIA [None]
  - FAECES DISCOLOURED [None]
  - GASTROOESOPHAGEAL REFLUX DISEASE [None]
  - DRUG INEFFECTIVE [None]
